FAERS Safety Report 7048239-3 (Version None)
Quarter: 2010Q4

REPORT INFORMATION
  Report Type: 
  Country: None (occurrence: None)
  Receive Date: 20101015
  Receipt Date: 20101006
  Transmission Date: 20110411
  Serious: Yes (Hospitalization, Other)
  Sender: FDA-Public Use
  Company Number: US-ABBOTT-10P-163-0676684-00

PATIENT
  Sex: Female
  Weight: 118.04 kg

DRUGS (5)
  1. DEPAKOTE [Suspect]
     Indication: REACTIVE ATTACHMENT DISORDER OF INFANCY OR EARLY CHILDHOOD
     Dates: start: 20000101, end: 20070101
  2. LAMICTAL [Suspect]
     Indication: REACTIVE ATTACHMENT DISORDER OF INFANCY OR EARLY CHILDHOOD
     Dates: start: 20050101, end: 20090101
  3. GEODON [Concomitant]
     Indication: REACTIVE ATTACHMENT DISORDER OF INFANCY OR EARLY CHILDHOOD
  4. PAXIL [Concomitant]
     Indication: REACTIVE ATTACHMENT DISORDER OF INFANCY OR EARLY CHILDHOOD
  5. THORAZINE [Concomitant]
     Indication: REACTIVE ATTACHMENT DISORDER OF INFANCY OR EARLY CHILDHOOD

REACTIONS (16)
  - ABNORMAL BEHAVIOUR [None]
  - BLINDNESS [None]
  - BONE EROSION [None]
  - BONE PAIN [None]
  - DRUG INEFFECTIVE [None]
  - DRUG LEVEL DECREASED [None]
  - HYPOACUSIS [None]
  - LOSS OF CONSCIOUSNESS [None]
  - LUNG INFECTION [None]
  - MANIA [None]
  - NEURALGIA [None]
  - PSYCHOTIC DISORDER [None]
  - RETINAL DISORDER [None]
  - RETINITIS PIGMENTOSA [None]
  - SPINAL FRACTURE [None]
  - VAGINAL HAEMORRHAGE [None]
